FAERS Safety Report 23557231 (Version 1)
Quarter: 2024Q1

REPORT INFORMATION
  Report Type: Spontaneous
  Country: KR (occurrence: KR)
  Receive Date: 20240223
  Receipt Date: 20240223
  Transmission Date: 20240409
  Serious: Yes (Hospitalization, Other)
  Sender: FDA-Public Use
  Company Number: KR-IPCA LABORATORIES LIMITED-IPC-2024-KR-000387

PATIENT

DRUGS (2)
  1. METFORMIN [Suspect]
     Active Substance: METFORMIN HYDROCHLORIDE
     Indication: Diabetes mellitus
     Dosage: UNK
     Route: 065
  2. GEMIGLIPTIN [Concomitant]
     Active Substance: GEMIGLIPTIN
     Indication: Product used for unknown indication
     Dosage: UNK
     Route: 065

REACTIONS (4)
  - Encephalopathy [Recovering/Resolving]
  - Condition aggravated [Recovering/Resolving]
  - Lactic acidosis [Recovering/Resolving]
  - Cerebrovascular accident [Recovering/Resolving]
